FAERS Safety Report 23710179 (Version 1)
Quarter: 2024Q2

REPORT INFORMATION
  Report Type: Spontaneous
  Country: US (occurrence: US)
  Receive Date: 20240405
  Receipt Date: 20240405
  Transmission Date: 20240716
  Serious: No
  Sender: FDA-Public Use
  Company Number: US-AYTU BIOPHARMA, INC.-2023AYT000021

PATIENT

DRUGS (3)
  1. ADZENYS XR-ODT [Suspect]
     Active Substance: AMPHETAMINE
     Indication: Attention deficit hyperactivity disorder
     Dosage: 15.7 MILLIGRAM
     Route: 065
     Dates: start: 20230117, end: 20230315
  2. ADZENYS XR-ODT [Suspect]
     Active Substance: AMPHETAMINE
     Dosage: 12.5 MILLIGRAM
     Route: 065
     Dates: start: 20230315, end: 20230315
  3. ADZENYS XR-ODT [Suspect]
     Active Substance: AMPHETAMINE
     Dosage: 9.4 MILLIGRAM
     Route: 065
     Dates: start: 20230316

REACTIONS (1)
  - Blepharospasm [Recovered/Resolved]

NARRATIVE: CASE EVENT DATE: 20230220
